FAERS Safety Report 21039909 (Version 1)
Quarter: 2022Q3

REPORT INFORMATION
  Report Type: Spontaneous
  Country: US (occurrence: US)
  Receive Date: 20220704
  Receipt Date: 20220704
  Transmission Date: 20221027
  Serious: No
  Sender: FDA-Public Use
  Company Number: US-ELI_LILLY_AND_COMPANY-US202206005928

PATIENT
  Sex: Female

DRUGS (4)
  1. BEBTELOVIMAB [Suspect]
     Active Substance: BEBTELOVIMAB
     Indication: COVID-19
     Dosage: 175 MG, SINGLE
     Route: 065
     Dates: start: 20220601, end: 20220601
  2. METHYLPREDNISOLONE [Concomitant]
     Active Substance: METHYLPREDNISOLONE
     Dosage: 4 MG, UNKNOWN
     Route: 065
     Dates: start: 20220531
  3. ALBUTEROL SULFATE [Concomitant]
     Active Substance: ALBUTEROL SULFATE
     Dosage: 90 UG, EVERY 4 HRS
     Route: 065
     Dates: start: 20220531
  4. FLUTICASONE [Concomitant]
     Active Substance: FLUTICASONE
     Dosage: UNK, UNKNOWN
     Route: 065

REACTIONS (2)
  - Cough [Unknown]
  - Throat irritation [Unknown]

NARRATIVE: CASE EVENT DATE: 20220601
